FAERS Safety Report 24200272 (Version 1)
Quarter: 2024Q3

REPORT INFORMATION
  Report Type: Spontaneous
  Country: US (occurrence: None)
  Receive Date: 20240809
  Receipt Date: 20240809
  Transmission Date: 20241016
  Serious: Yes (Other)
  Sender: Public
  Company Number: None

PATIENT
  Age: 74 Year
  Sex: Female

DRUGS (2)
  1. SIMPONI [Suspect]
     Active Substance: GOLIMUMAB
     Indication: Psoriasis
     Dosage: FREQUENCY : MONTHLY;?
     Route: 058
  2. ROFLUMILAST [Suspect]
     Active Substance: ROFLUMILAST

REACTIONS (6)
  - Dysphonia [None]
  - Weight decreased [None]
  - Eye infarction [None]
  - Pruritus [None]
  - Contusion [None]
  - Skin laceration [None]
